FAERS Safety Report 12723140 (Version 1)
Quarter: 2016Q3

REPORT INFORMATION
  Report Type: Spontaneous
  Country: US (occurrence: US)
  Receive Date: 20160908
  Receipt Date: 20160908
  Transmission Date: 20161109
  Serious: No
  Sender: FDA-Public Use
  Company Number: PHEH2016US022526

PATIENT
  Age: 69 Year
  Sex: Male

DRUGS (2)
  1. VOTRIENT [Suspect]
     Active Substance: PAZOPANIB HYDROCHLORIDE
     Indication: RENAL CELL CARCINOMA
     Dosage: 800 MG, QD
     Route: 065
  2. VOTRIENT [Suspect]
     Active Substance: PAZOPANIB HYDROCHLORIDE
     Dosage: 600 MG, QD (WITH HYDRATION 3 TIMES PER WEEK)
     Route: 048

REACTIONS (4)
  - Blood creatinine increased [Unknown]
  - Vertigo [Not Recovered/Not Resolved]
  - Hypercalcaemia [Unknown]
  - Dizziness [Not Recovered/Not Resolved]
